FAERS Safety Report 8578516-6 (Version None)
Quarter: 2012Q3

REPORT INFORMATION
  Report Type: 
  Country: None (occurrence: None)
  Receive Date: 20120808
  Receipt Date: 20120731
  Transmission Date: 20120928
  Serious: Yes (Hospitalization)
  Sender: FDA-Public Use
  Company Number: US-BAYER-2012-046938

PATIENT
  Age: 29 Year
  Sex: Female
  Weight: 84.807 kg

DRUGS (7)
  1. ZOFRAN [Concomitant]
  2. ULTRAM [Concomitant]
     Dosage: UNK UNK, PRN
  3. LOESTRIN 1.5/30 [Concomitant]
  4. MORPHINE [Concomitant]
  5. CIPROFLOXACIN HCL [Concomitant]
  6. YAZ [Suspect]
     Indication: PREMENSTRUAL SYNDROME
     Dosage: UNK
     Dates: start: 20070925, end: 20100301
  7. FLAGYL [Concomitant]

REACTIONS (6)
  - CHOLECYSTITIS ACUTE [None]
  - ANXIETY [None]
  - PAIN [None]
  - CHOLELITHIASIS [None]
  - INJURY [None]
  - ANHEDONIA [None]
